FAERS Safety Report 9802287 (Version 2)
Quarter: 2014Q1

REPORT INFORMATION
  Report Type: Report from Study
  Country: US (occurrence: US)
  Receive Date: 20140107
  Receipt Date: 20140107
  Transmission Date: 20141002
  Serious: Yes (Hospitalization)
  Sender: FDA-Public Use
  Company Number: US-BRISTOL-MYERS SQUIBB COMPANY-14928931

PATIENT
  Age: 57 Year
  Sex: Male

DRUGS (4)
  1. IPILIMUMAB [Suspect]
     Indication: MALIGNANT MELANOMA
     Dosage: 943 MG
     Route: 042
     Dates: start: 20090916, end: 20091117
  2. EFFEXOR [Concomitant]
     Dates: start: 2000
  3. SEROQUEL [Concomitant]
     Dates: start: 200812
  4. CRESTOR [Concomitant]
     Dates: start: 2006

REACTIONS (3)
  - Syncope [Recovered/Resolved]
  - Hypotension [Recovered/Resolved]
  - Dehydration [Recovered/Resolved]
